FAERS Safety Report 21312573 (Version 1)
Quarter: 2022Q3

REPORT INFORMATION
  Report Type: Spontaneous
  Country: US (occurrence: None)
  Receive Date: 20220908
  Receipt Date: 20220908
  Transmission Date: 20221026
  Serious: Yes (Hospitalization)
  Sender: FDA-Public Use
  Company Number: None

PATIENT
  Sex: Male

DRUGS (1)
  1. VIGABATRIN [Suspect]
     Active Substance: VIGABATRIN
     Indication: Epilepsy
     Dosage: OTHER FREQUENCY : 1500 AM, 2000 PM;?OTHER ROUTE : VIA G-TUBE;?
     Route: 050
     Dates: start: 20180517

REACTIONS (1)
  - Hip surgery [None]
